FAERS Safety Report 6645685-4 (Version None)
Quarter: 2010Q1

REPORT INFORMATION
  Report Type: 
  Country: None (occurrence: None)
  Receive Date: 20100319
  Receipt Date: 20100319
  Transmission Date: 20100710
  Serious: Yes (Death)
  Sender: FDA-Public Use
  Company Number: None

PATIENT
  Sex: Female
  Weight: 35.3806 kg

DRUGS (2)
  1. GEMCITABINE HCL [Suspect]
     Indication: PANCREATIC CARCINOMA
     Dosage: 750 MG/M2 D1, 8, 15 Q 21 DAYS IV
     Route: 042
     Dates: start: 20091222, end: 20100205
  2. TARCEVA [Suspect]
     Indication: PANCREATIC CARCINOMA
     Dosage: 100MG INTERMITTENT P.O.
     Route: 048
     Dates: start: 20091223, end: 20100216

REACTIONS (4)
  - MALIGNANT NEOPLASM PROGRESSION [None]
  - NAUSEA [None]
  - PANCREATIC CARCINOMA [None]
  - WEIGHT DECREASED [None]
